FAERS Safety Report 17847203 (Version 1)
Quarter: 2020Q2

REPORT INFORMATION
  Report Type: Spontaneous
  Country: CO (occurrence: CO)
  Receive Date: 20200601
  Receipt Date: 20200601
  Transmission Date: 20200714
  Serious: Yes (Hospitalization)
  Sender: FDA-Public Use
  Company Number: CO-BIOMARINAP-CO-2020-130383

PATIENT
  Age: 9 Year
  Sex: Female

DRUGS (1)
  1. NAGLAZYME [Suspect]
     Active Substance: GALSULFASE
     Indication: MUCOPOLYSACCHARIDOSIS VI
     Dosage: 28 MILLIGRAM
     Route: 042
     Dates: start: 20130306

REACTIONS (3)
  - Body temperature increased [Unknown]
  - Toothache [Unknown]
  - Product dose omission [Unknown]

NARRATIVE: CASE EVENT DATE: 20200523
